FAERS Safety Report 9251062 (Version 1)
Quarter: 2013Q1

REPORT INFORMATION
  Report Type: Spontaneous
  Country: US (occurrence: None)
  Receive Date: 20130305
  Receipt Date: 20130305
  Transmission Date: 20140127
  Serious: Yes (Other)
  Sender: FDA-Public Use
  Company Number: 163-21880-12042249

PATIENT
  Age: 57 Year
  Sex: Male

DRUGS (9)
  1. REVLIMID [Suspect]
     Indication: PLASMA CELL MYELOMA
     Route: 048
     Dates: start: 20111210
  2. VITAMIN D (ERGOCALCIFEROL) [Concomitant]
  3. CALTRATE 600 (CALCIUM CARBONATE) [Concomitant]
  4. OMEPRAZOLE (OMEPRAZOLE) [Concomitant]
  5. OXYCODONE-ACETAMINOPHEN (OXYCOCET) [Concomitant]
  6. CARBIDOPA-LEVODOPA (SINEMET) [Concomitant]
  7. ATENOLOL (ATENOLOL) [Concomitant]
  8. BETASERON (BETASERON) [Concomitant]
  9. ZOMETA (ZOLEDRONIC ACID) [Concomitant]

REACTIONS (2)
  - Hallucination [None]
  - Decreased appetite [None]
